FAERS Safety Report 4596775-1 (Version None)
Quarter: 2005Q1

REPORT INFORMATION
  Report Type: 
  Country: None (occurrence: None)
  Receive Date: 20050228
  Receipt Date: 20040623
  Transmission Date: 20050727
  Serious: Yes (Death, Hospitalization)
  Sender: FDA-Public Use
  Company Number: 8266

PATIENT
  Age: 63 Year
  Sex: Female

DRUGS (6)
  1. METHOTREXATE [Suspect]
     Indication: RHEUMATOID ARTHRITIS
     Dosage: 12.5 G WEEKLY, IM
     Route: 030
     Dates: start: 20040201, end: 20040408
  2. ETANERCEPT [Suspect]
     Indication: RHEUMATOID ARTHRITIS
     Dosage: 25 MG 2/WK SC
     Route: 058
     Dates: start: 20040201, end: 20040408
  3. PREDNISOLONE [Concomitant]
  4. ALENDRONATE SODIUM [Concomitant]
  5. CELECOXIB [Concomitant]
  6. RAMIPRIL [Concomitant]

REACTIONS (4)
  - DYSPNOEA [None]
  - PRODUCTIVE COUGH [None]
  - RESPIRATORY FAILURE [None]
  - RESPIRATORY TRACT INFECTION [None]
